FAERS Safety Report 5193924-1 (Version None)
Quarter: 2006Q4

REPORT INFORMATION
  Report Type: 
  Country: None (occurrence: None)
  Receive Date: 20061222
  Receipt Date: 20061213
  Transmission Date: 20070319
  Serious: Yes (Other)
  Sender: FDA-Public Use
  Company Number: 231929

PATIENT
  Age: 4 Year
  Sex: Female

DRUGS (1)
  1. NUTROPIN [Suspect]
     Indication: FAILURE TO THRIVE
     Dosage: 0.14 ML
     Dates: start: 20051102

REACTIONS (3)
  - ARRHYTHMIA [None]
  - CARDIAC MURMUR [None]
  - KIDNEY INFECTION [None]
